FAERS Safety Report 7492430-9 (Version None)
Quarter: 2011Q2

REPORT INFORMATION
  Report Type: 
  Country: None (occurrence: None)
  Receive Date: 20110519
  Receipt Date: 20110504
  Transmission Date: 20111010
  Serious: No
  Sender: FDA-Public Use
  Company Number: US-B.I. PHARMACEUTICALS,INC./RIDGEFIELD-2011-BP-07672BP

PATIENT
  Sex: Male

DRUGS (21)
  1. VITAMIN C [Concomitant]
     Dosage: 1000 MG
  2. LIPITOR [Concomitant]
     Dosage: 40 MG
  3. METFORMIN HCL [Concomitant]
     Dosage: 1000 MG
  4. PRADAXA [Suspect]
     Indication: CARDIAC ABLATION
     Dosage: 300 MG
     Route: 048
     Dates: start: 20110201
  5. AVANDIA [Concomitant]
     Dosage: 4 MG
  6. FERROUS SULFATE TAB [Concomitant]
     Dosage: 130 MG
  7. ASPIRIN [Concomitant]
     Dosage: 325 MG
  8. VALIUM [Concomitant]
  9. ZESTRIL [Concomitant]
     Dosage: 40 MG
  10. MULTI-VITAMIN [Concomitant]
  11. PRADAXA [Suspect]
     Indication: CARDIAC ASSISTANCE DEVICE USER
  12. FLUTICASONE PROPIONATE [Concomitant]
     Dosage: 100 MCG
  13. BALANCED B-100 [Concomitant]
  14. CALCIUM CITRATE [Concomitant]
     Dosage: 500 MG
  15. CHLORPHENIRAMINE MALEATE [Concomitant]
  16. SAW PALMETTO [Concomitant]
     Dosage: 1800 MG
  17. PRADAXA [Suspect]
     Indication: CEREBROVASCULAR ACCIDENT PROPHYLAXIS
     Dosage: 300 MG
     Route: 048
     Dates: start: 20101111
  18. NEURONTIN [Concomitant]
     Dosage: 1600 MG
  19. ISOSORBIDE (IMDUR) [Concomitant]
     Dosage: 30 MG
  20. PLAVIX [Concomitant]
     Indication: STENT PLACEMENT
     Dosage: 75 MG
  21. ZETIA [Concomitant]
     Dosage: 5 MG

REACTIONS (3)
  - HAEMORRHAGE [None]
  - EPISTAXIS [None]
  - ATRIAL FIBRILLATION [None]
